FAERS Safety Report 21820977 (Version 2)
Quarter: 2023Q1

REPORT INFORMATION
  Report Type: Spontaneous
  Country: PT (occurrence: PT)
  Receive Date: 20230105
  Receipt Date: 20230202
  Transmission Date: 20230418
  Serious: Yes (Hospitalization, Other)
  Sender: FDA-Public Use
  Company Number: PT-GT-20221668

PATIENT
  Age: 47 Year
  Sex: Male

DRUGS (1)
  1. RAMIPRIL [Suspect]
     Active Substance: RAMIPRIL
     Indication: Hypertension
     Dosage: UNK
     Route: 065

REACTIONS (6)
  - Abdominal pain [Recovered/Resolved]
  - Hypergammaglobulinaemia benign monoclonal [Recovered/Resolved]
  - Vomiting [Recovered/Resolved]
  - Acquired C1 inhibitor deficiency [Recovered/Resolved]
  - Infrequent bowel movements [Recovered/Resolved]
  - Intestinal angioedema [Recovered/Resolved]
